FAERS Safety Report 4450716-6 (Version None)
Quarter: 2004Q3

REPORT INFORMATION
  Report Type: 
  Country: None (occurrence: None)
  Receive Date: 20040914
  Receipt Date: 20040914
  Transmission Date: 20050211
  Serious: Yes (Hospitalization)
  Sender: FDA-Public Use
  Company Number: None

PATIENT
  Age: 70 Year
  Sex: Female
  Weight: 98.4 kg

DRUGS (7)
  1. BEVACIZUMAB [Suspect]
     Indication: COLORECTAL CANCER METASTATIC
     Dosage: 475 MG IV
     Route: 042
     Dates: start: 20040709
  2. GEMCITABINE [Suspect]
     Indication: COLORECTAL CANCER METASTATIC
     Dosage: 1501 MG/IV
     Route: 042
     Dates: start: 20040709
  3. PALONOSETRON [Concomitant]
  4. DEXAMETHASONE [Concomitant]
  5. LEUOCOVORIN CALCIUM [Concomitant]
  6. FUROSEMIDE [Concomitant]
  7. FLUOROURACIL [Concomitant]

REACTIONS (5)
  - BLISTER [None]
  - PAIN IN EXTREMITY [None]
  - SKIN DISCOLOURATION [None]
  - SKIN NECROSIS [None]
  - TREMOR [None]
